FAERS Safety Report 8551137 (Version 2)
Quarter: 2012Q4

REPORT INFORMATION
  Report Type: 
  Country: FR (occurrence: FR)
  Receive Date: 20120508
  Receipt Date: 20121213
  Transmission Date: 20130627
  Serious: Yes (Hospitalization)
  Sender: FDA-Public Use
  Company Number: FR-BRISTOL-MYERS SQUIBB COMPANY-16559627

PATIENT
  Age: 48 Year
  Sex: Male

DRUGS (6)
  1. REYATAZ [Suspect]
     Indication: HIV INFECTION
     Dates: start: 20040713, end: 20120412
  2. NORVIR [Suspect]
     Dates: start: 200407
  3. TRUVADA [Suspect]
     Dates: start: 200701
  4. DEROXAT [Concomitant]
  5. RISPERDAL [Concomitant]
  6. XANAX [Concomitant]

REACTIONS (4)
  - Renal failure acute [Recovered/Resolved]
  - Renal colic [Recovered/Resolved]
  - Haematuria [Recovered/Resolved]
  - Inflammation [Recovered/Resolved]
